FAERS Safety Report 4609452-5 (Version None)
Quarter: 2005Q1

REPORT INFORMATION
  Report Type: 
  Country: None (occurrence: None)
  Receive Date: 20050314
  Receipt Date: 20050228
  Transmission Date: 20050727
  Serious: Yes (Hospitalization, Other)
  Sender: FDA-Public Use
  Company Number: 2005039087

PATIENT
  Sex: Female

DRUGS (13)
  1. ZOLOFT [Suspect]
     Indication: DEPRESSION
     Dosage: 50 MG (50 MG, 1 IN 1 D), ORAL
     Route: 048
     Dates: end: 20050123
  2. ACENOCOUMAROL (ACENOCOUMAROL) [Suspect]
     Indication: PULMONARY EMBOLISM
     Dosage: ORAL
     Route: 048
  3. TRAMADOL HCL [Suspect]
     Indication: MUSCULOSKELETAL PAIN
     Dosage: 75 MG (3 IN 1 D), ORAL
     Route: 048
     Dates: end: 20050124
  4. CANDESARTAN CILEXETIL (CANDESARTAN CILEXETIL) [Concomitant]
  5. TORSEMIDE [Concomitant]
  6. SPIRONOLACTONE [Concomitant]
  7. INSULIN HUMAN INJECTION, ISOPHANE (INSULIN HUMAN INJECTION, ISOPHANE) [Concomitant]
  8. METHOTREXATE [Concomitant]
  9. INSULIN [Concomitant]
  10. ACETAMINOPHEN [Concomitant]
  11. FOLIC ACID [Concomitant]
  12. NSAID'S (NSAID'S) [Concomitant]
  13. ESOMEPRAZOLE (ESOMEPRAZOLE) [Concomitant]

REACTIONS (8)
  - ARTHRALGIA [None]
  - FALL [None]
  - HAEMATEMESIS [None]
  - HIATUS HERNIA [None]
  - HYPOXIA [None]
  - IRON DEFICIENCY ANAEMIA [None]
  - RESPIRATORY FAILURE [None]
  - RIB FRACTURE [None]
